FAERS Safety Report 10462270 (Version 1)
Quarter: 2014Q3

REPORT INFORMATION
  Report Type: Spontaneous
  Country: GB (occurrence: GB)
  Receive Date: 20140918
  Receipt Date: 20140918
  Transmission Date: 20150326
  Serious: Yes (Hospitalization, Disabling, Other)
  Sender: FDA-Public Use
  Company Number: GB-WATSON-2014-19995

PATIENT
  Age: 23 Year
  Sex: Female
  Weight: 88 kg

DRUGS (6)
  1. ERYTHROMYCIN. [Concomitant]
     Active Substance: ERYTHROMYCIN
     Indication: PRODUCT USED FOR UNKNOWN INDICATION
     Dosage: UNK
     Route: 065
  2. METFORMIN [Concomitant]
     Active Substance: METFORMIN HYDROCHLORIDE
     Indication: PRODUCT USED FOR UNKNOWN INDICATION
     Dosage: UNK
     Route: 065
  3. TETRACYCLINE (UNKNOWN) [Suspect]
     Active Substance: TETRACYCLINE
     Indication: ACNE
     Dosage: 500 MG, UNKNOWN
     Route: 048
     Dates: start: 20130905, end: 20131224
  4. FEANOLLA [Concomitant]
     Indication: PRODUCT USED FOR UNKNOWN INDICATION
     Dosage: UNK
     Route: 065
  5. DIAMOX                             /00016901/ [Concomitant]
     Active Substance: ACETAZOLAMIDE
     Indication: PRODUCT USED FOR UNKNOWN INDICATION
     Dosage: UNK
     Route: 065
  6. MIRTAZAPINE. [Concomitant]
     Active Substance: MIRTAZAPINE
     Indication: PRODUCT USED FOR UNKNOWN INDICATION
     Dosage: UNK
     Route: 065

REACTIONS (7)
  - Hepatomegaly [Unknown]
  - Tinnitus [Recovered/Resolved]
  - Diplopia [Recovered/Resolved]
  - Musculoskeletal stiffness [Recovered/Resolved]
  - Liver function test abnormal [Unknown]
  - Splenomegaly [Unknown]
  - Migraine with aura [Recovering/Resolving]

NARRATIVE: CASE EVENT DATE: 20131205
